FAERS Safety Report 9665580 (Version 1)
Quarter: 2013Q4

REPORT INFORMATION
  Report Type: Spontaneous
  Country: US (occurrence: None)
  Receive Date: 20131031
  Receipt Date: 20131031
  Transmission Date: 20140711
  Serious: Yes (Other)
  Sender: FDA-Public Use
  Company Number: None

PATIENT
  Age: 62 Year
  Sex: Male

DRUGS (1)
  1. TASIGNA 150MG NOVARTIS [Suspect]
     Route: 048
     Dates: start: 20121124

REACTIONS (1)
  - Nausea [None]
